FAERS Safety Report 19034924 (Version 1)
Quarter: 2021Q1

REPORT INFORMATION
  Report Type: Spontaneous
  Country: US (occurrence: US)
  Receive Date: 20210320
  Receipt Date: 20210320
  Transmission Date: 20210420
  Serious: Yes (Other)
  Sender: FDA-Public Use
  Company Number: US-ACCORD-219873

PATIENT
  Sex: Male

DRUGS (1)
  1. CLONAZEPAM. [Suspect]
     Active Substance: CLONAZEPAM
     Indication: ANXIETY
     Dosage: TID
     Route: 048

REACTIONS (4)
  - Foreign body in throat [Unknown]
  - Oropharyngeal pain [Not Recovered/Not Resolved]
  - Product use complaint [Unknown]
  - Off label use [Unknown]
